FAERS Safety Report 6666325-4 (Version None)
Quarter: 2010Q2

REPORT INFORMATION
  Report Type: 
  Country: None (occurrence: None)
  Receive Date: 20100402
  Receipt Date: 20100322
  Transmission Date: 20101027
  Serious: Yes (Other)
  Sender: FDA-Public Use
  Company Number: BR-WYE-H14268710

PATIENT
  Sex: Female
  Weight: 60 kg

DRUGS (2)
  1. EFFEXOR XR [Suspect]
     Indication: DEPRESSION
     Dosage: STARTED AT 75 MG DAILY AND WAS INCREASED TO 150 MG
     Route: 048
     Dates: start: 20040101, end: 20070101
  2. EFFEXOR XR [Suspect]
     Dosage: MEDICATION WAS ^GRADUALLY REMOVED^
     Route: 048
     Dates: start: 20070101, end: 20070101

REACTIONS (4)
  - BUNDLE BRANCH BLOCK LEFT [None]
  - HYPERTROPHY [None]
  - PALPITATIONS [None]
  - TREMOR [None]
